FAERS Safety Report 25005974 (Version 1)
Quarter: 2025Q1

REPORT INFORMATION
  Report Type: Report from Study
  Country: US (occurrence: US)
  Receive Date: 20250224
  Receipt Date: 20250224
  Transmission Date: 20250408
  Serious: Yes (Hospitalization)
  Sender: EISAI
  Company Number: US-Eisai-EC-2024-178862

PATIENT
  Age: 69 Year
  Sex: Female

DRUGS (3)
  1. LENVIMA [Suspect]
     Active Substance: LENVATINIB
     Indication: Endometrial cancer
     Dates: start: 20241030, end: 202411
  2. LENVIMA [Suspect]
     Active Substance: LENVATINIB
     Dates: start: 20241209, end: 202502
  3. KEYTRUDA [Suspect]
     Active Substance: PEMBROLIZUMAB
     Indication: Endometrial cancer

REACTIONS (13)
  - Blood calcium decreased [Unknown]
  - Skin exfoliation [Unknown]
  - Pruritus [Unknown]
  - Blood magnesium decreased [Unknown]
  - Blood potassium decreased [Unknown]
  - Exfoliative rash [Unknown]
  - Skin ulcer [Unknown]
  - Gait inability [Unknown]
  - Diarrhoea [Unknown]
  - Pain [Unknown]
  - Neuropathy peripheral [Unknown]
  - Rash [Unknown]
  - Pain in extremity [Unknown]

NARRATIVE: CASE EVENT DATE: 20231101
